FAERS Safety Report 9012317 (Version 4)
Quarter: 2014Q3

REPORT INFORMATION
  Report Type: Spontaneous
  Country: US (occurrence: US)
  Receive Date: 20130114
  Receipt Date: 20140709
  Transmission Date: 20150326
  Serious: Yes (Hospitalization, Other)
  Sender: FDA-Public Use
  Company Number: US-009507513-1301USA005171

PATIENT
  Sex: Female
  Weight: 58.96 kg

DRUGS (2)
  1. ZOLOFT [Concomitant]
     Active Substance: SERTRALINE HYDROCHLORIDE
     Indication: PRODUCT USED FOR UNKNOWN INDICATION
     Dosage: 50 MG, QD
     Dates: start: 201009, end: 201104
  2. NUVARING [Suspect]
     Active Substance: ETHINYL ESTRADIOL\ETONOGESTREL
     Indication: CONTRACEPTION
     Dosage: UNK
     Route: 067
     Dates: start: 2007, end: 20101218

REACTIONS (10)
  - Pre-eclampsia [Unknown]
  - Maternal exposure before pregnancy [Recovered/Resolved]
  - Haemorrhage [Unknown]
  - Lyme disease [Unknown]
  - Urethral stenosis [Unknown]
  - Eclampsia [Unknown]
  - Coagulopathy [Unknown]
  - Depression [Not Recovered/Not Resolved]
  - Transfusion [Unknown]
  - Deep vein thrombosis [Unknown]

NARRATIVE: CASE EVENT DATE: 201012
